FAERS Safety Report 5946535-1 (Version None)
Quarter: 2008Q4

REPORT INFORMATION
  Report Type: 
  Country: None (occurrence: None)
  Receive Date: 20081110
  Receipt Date: 20081104
  Transmission Date: 20090506
  Serious: Yes (Death, Hospitalization)
  Sender: FDA-Public Use
  Company Number: B0544849A

PATIENT
  Age: 74 Year
  Sex: Male
  Weight: 74.7 kg

DRUGS (2)
  1. TOPOTECAN [Suspect]
     Dosage: 2.8MGDL PER DAY
     Route: 042
     Dates: start: 20080728, end: 20080730
  2. WARFARIN SODIUM [Concomitant]
     Indication: ANTICOAGULANT THERAPY
     Dosage: 2.5MG PER DAY
     Route: 048
     Dates: start: 19980101

REACTIONS (5)
  - CEREBROVASCULAR ACCIDENT [None]
  - DEPRESSED LEVEL OF CONSCIOUSNESS [None]
  - DRUG TOXICITY [None]
  - EPISTAXIS [None]
  - PANCYTOPENIA [None]
